FAERS Safety Report 26076510 (Version 1)
Quarter: 2025Q4

REPORT INFORMATION
  Report Type: Spontaneous
  Country: SA (occurrence: SA)
  Receive Date: 20251121
  Receipt Date: 20251121
  Transmission Date: 20260117
  Serious: Yes (Other)
  Sender: PFIZER
  Company Number: SA-PFIZER INC-PV202500136108

PATIENT
  Sex: Female

DRUGS (1)
  1. LORBRENA [Suspect]
     Active Substance: LORLATINIB
     Indication: Non-small cell lung cancer metastatic
     Dosage: 100 MG

REACTIONS (1)
  - Hallucination [Not Recovered/Not Resolved]
